FAERS Safety Report 19501784 (Version 1)
Quarter: 2021Q3

REPORT INFORMATION
  Report Type: Spontaneous
  Country: US (occurrence: US)
  Receive Date: 20210704
  Receipt Date: 20210704
  Transmission Date: 20211014
  Serious: Yes (Other)
  Sender: FDA-Public Use
  Company Number: None

PATIENT
  Age: 7 Year
  Sex: Male

DRUGS (8)
  1. EPIDIOLEX [Suspect]
     Active Substance: CANNABIDIOL
     Indication: LENNOX-GASTAUT SYNDROME
     Route: 048
  2. NEBULIZER [Concomitant]
     Active Substance: DEVICE
  3. LEVOCARNITINE. [Concomitant]
     Active Substance: LEVOCARNITINE
  4. ALBUTEROL. [Concomitant]
     Active Substance: ALBUTEROL
  5. VITAMIN D [Concomitant]
     Active Substance: VITAMIN D NOS
  6. BUDESONIDE. [Concomitant]
     Active Substance: BUDESONIDE
  7. LAMOTRIGINE. [Concomitant]
     Active Substance: LAMOTRIGINE
  8. VALPROIC [Concomitant]
     Active Substance: VALPROIC ACID

REACTIONS (2)
  - Incorrect dose administered [None]
  - Intentional product use issue [None]

NARRATIVE: CASE EVENT DATE: 20210702
